FAERS Safety Report 18149953 (Version 1)
Quarter: 2020Q3

REPORT INFORMATION
  Report Type: Other
  Country: CA (occurrence: CA)
  Receive Date: 20200814
  Receipt Date: 20200814
  Transmission Date: 20201103
  Serious: Yes (Disabling, Other)
  Sender: FDA-Public Use
  Company Number: CA-EMCURE PHARMACEUTICALS LTD-2020-EPL-001087

PATIENT
  Sex: Female

DRUGS (2)
  1. REACTINE [Concomitant]
     Dosage: UNK
  2. RANITIDINE. [Suspect]
     Active Substance: RANITIDINE
     Indication: MECHANICAL URTICARIA
     Dosage: 300 MILLIGRAM, 1 DOSE PER 1 D

REACTIONS (3)
  - Chest discomfort [Unknown]
  - Chest pain [Unknown]
  - Off label use [Unknown]
